FAERS Safety Report 5422404-0 (Version None)
Quarter: 2007Q3

REPORT INFORMATION
  Report Type: 
  Country: None (occurrence: None)
  Receive Date: 20070822
  Receipt Date: 20070814
  Transmission Date: 20080115
  Serious: Yes (Hospitalization, Disabling)
  Sender: FDA-Public Use
  Company Number: B0431308A

PATIENT
  Age: 21 Year
  Sex: Male

DRUGS (2)
  1. SEROXAT [Suspect]
     Indication: DRUG USE FOR UNKNOWN INDICATION
     Route: 048
     Dates: start: 20041001, end: 20050201
  2. ZOLOFT [Concomitant]

REACTIONS (12)
  - ANXIETY [None]
  - BLOOD PRESSURE DECREASED [None]
  - DEPRESSION [None]
  - DISTURBANCE IN ATTENTION [None]
  - HEADACHE [None]
  - LOSS OF CONSCIOUSNESS [None]
  - PERSONALITY CHANGE [None]
  - PHAGOPHOBIA [None]
  - SCHIZOPHRENIA [None]
  - SLEEP DISORDER [None]
  - TACHYCARDIA [None]
  - VERTIGO [None]
